FAERS Safety Report 11423553 (Version 1)
Quarter: 2015Q3

REPORT INFORMATION
  Report Type: Spontaneous
  Country: US (occurrence: US)
  Receive Date: 20150827
  Receipt Date: 20150827
  Transmission Date: 20151125
  Serious: No
  Sender: FDA-Public Use
  Company Number: US-JNJFOC-20130915375

PATIENT
  Age: 12 Month
  Sex: Male
  Weight: 13.61 kg

DRUGS (3)
  1. CONCENTRATED MOTRIN INFANTS^ DROPS BERRY FLAVOR [Suspect]
     Active Substance: IBUPROFEN
     Indication: PYREXIA
     Route: 048
     Dates: start: 20130921, end: 20130925
  2. CONCENTRATED MOTRIN INFANTS^ DROPS BERRY FLAVOR [Suspect]
     Active Substance: IBUPROFEN
     Indication: TEETHING
     Route: 048
     Dates: start: 20130921, end: 20130925
  3. BENADRYL [Concomitant]
     Active Substance: DIPHENHYDRAMINE HYDROCHLORIDE
     Indication: SEASONAL ALLERGY
     Dosage: INTERVAL OF 3-4 WEEKS.
     Route: 065

REACTIONS (5)
  - Product expiration date issue [Unknown]
  - Choking sensation [Recovered/Resolved]
  - Incorrect dose administered [Recovered/Resolved]
  - Product quality issue [Unknown]
  - Product lot number issue [Unknown]

NARRATIVE: CASE EVENT DATE: 20130921
